FAERS Safety Report 8385135-3 (Version None)
Quarter: 2012Q2

REPORT INFORMATION
  Report Type: 
  Country: None (occurrence: None)
  Receive Date: 20120524
  Receipt Date: 20120517
  Transmission Date: 20120825
  Serious: Yes (Hospitalization)
  Sender: FDA-Public Use
  Company Number: DE-BAXTER-2012BAX006221

PATIENT
  Age: 72 Year
  Sex: Female
  Weight: 184 kg

DRUGS (3)
  1. DOCETAXEL [Suspect]
     Indication: BREAST CANCER
     Route: 042
     Dates: start: 20110721, end: 20111103
  2. CYCLOPHOSPHAMIDE [Suspect]
     Indication: BREAST CANCER
     Route: 042
     Dates: start: 20110721, end: 20111103
  3. AROMASIN [Suspect]
     Indication: BREAST CANCER
     Route: 048
     Dates: start: 20120201

REACTIONS (1)
  - ATRIOVENTRICULAR BLOCK COMPLETE [None]
